FAERS Safety Report 12221578 (Version 1)
Quarter: 2016Q1

REPORT INFORMATION
  Report Type: Spontaneous
  Country: US (occurrence: US)
  Receive Date: 20160330
  Receipt Date: 20160330
  Transmission Date: 20160526
  Serious: Yes (Other)
  Sender: FDA-Public Use
  Company Number: US-PFIZER INC-2016177933

PATIENT
  Age: 63 Year
  Sex: Male
  Weight: 63.49 kg

DRUGS (7)
  1. CHANTIX [Suspect]
     Active Substance: VARENICLINE TARTRATE
     Indication: SMOKING CESSATION THERAPY
     Dosage: 0.5 MG, 1X/DAY
     Dates: start: 20160228
  2. ZYPREXA [Concomitant]
     Active Substance: OLANZAPINE
     Dosage: UNK
  3. CHANTIX [Suspect]
     Active Substance: VARENICLINE TARTRATE
     Dosage: 0.5 MG, 2X/DAY (ONE IN THE MORNING AND ONE IN THE EVENING )
  4. CHANTIX [Suspect]
     Active Substance: VARENICLINE TARTRATE
     Dosage: 1 MG, UNK
  5. CHANTIX [Suspect]
     Active Substance: VARENICLINE TARTRATE
     Dosage: 0.5 MG, 1X/DAY
  6. NICOTINE. [Suspect]
     Active Substance: NICOTINE
     Indication: SMOKING CESSATION THERAPY
     Dosage: UNK
  7. WARFARIN [Concomitant]
     Active Substance: WARFARIN
     Dosage: UNK

REACTIONS (22)
  - Swollen tongue [Not Recovered/Not Resolved]
  - Paranoia [Unknown]
  - Panic attack [Unknown]
  - Nausea [Unknown]
  - Headache [Unknown]
  - Mouth swelling [Unknown]
  - Mood altered [Unknown]
  - Agitation [Unknown]
  - Migraine [Not Recovered/Not Resolved]
  - Palpitations [Unknown]
  - Anger [Unknown]
  - Pharyngeal oedema [Not Recovered/Not Resolved]
  - Lip swelling [Not Recovered/Not Resolved]
  - Vomiting [Unknown]
  - Seizure [Unknown]
  - Dyspnoea [Unknown]
  - Flatulence [Unknown]
  - Confusional state [Unknown]
  - Abnormal behaviour [Unknown]
  - Swelling face [Unknown]
  - Aggression [Unknown]
  - Nightmare [Unknown]

NARRATIVE: CASE EVENT DATE: 2016
